FAERS Safety Report 8228644-X (Version None)
Quarter: 2012Q1

REPORT INFORMATION
  Report Type: 
  Country: None (occurrence: None)
  Receive Date: 20120322
  Receipt Date: 20110214
  Transmission Date: 20120608
  Serious: Yes (Other)
  Sender: FDA-Public Use
  Company Number: US-BRISTOL-MYERS SQUIBB COMPANY-15549629

PATIENT
  Sex: Male

DRUGS (2)
  1. COUMADIN [Concomitant]
  2. ERBITUX [Suspect]
     Indication: COLORECTAL CANCER
     Route: 042
     Dates: start: 20110103, end: 20110103

REACTIONS (1)
  - ANAPHYLACTIC REACTION [None]
